FAERS Safety Report 24030958 (Version 3)
Quarter: 2024Q3

REPORT INFORMATION
  Report Type: Spontaneous
  Country: JP (occurrence: JP)
  Receive Date: 20240628
  Receipt Date: 20240717
  Transmission Date: 20241017
  Serious: Yes (Hospitalization)
  Sender: FERRING
  Company Number: JP-FERRINGPH-2024FE02469

PATIENT

DRUGS (8)
  1. PICOPREP [Suspect]
     Active Substance: ANHYDROUS CITRIC ACID\MAGNESIUM OXIDE\SODIUM PICOSULFATE
     Indication: Bowel preparation
     Dosage: 150 MG, 1 TIME DAILY
     Route: 048
     Dates: start: 20231227, end: 20231227
  2. MAGNESIUM CITRATE [Suspect]
     Active Substance: MAGNESIUM CITRATE
     Indication: Bowel preparation
     Dosage: 50 G, 1 TIME DAILY
     Route: 048
     Dates: start: 20231226, end: 20231226
  3. SODIUM PICOSULFATE [Suspect]
     Active Substance: SODIUM PICOSULFATE
     Indication: Bowel preparation
     Dosage: 1 DOSAGE FORM, 1 TIME DAILY
     Route: 048
     Dates: start: 20231226, end: 20231226
  4. CRESTOR [Concomitant]
     Active Substance: ROSUVASTATIN CALCIUM
     Indication: Dyslipidaemia
     Dosage: 1 DOSAGE FORM, DAILY
     Route: 048
     Dates: start: 20230630
  5. LINZESS [Concomitant]
     Active Substance: LINACLOTIDE
     Indication: Constipation
     Dosage: 1 DOSAGE FORM, DAILY
     Route: 048
     Dates: start: 20230721
  6. SENNOSIDES A AND B [Concomitant]
     Active Substance: SENNOSIDES A AND B
     Indication: Constipation
     Dosage: 1 DOSAGE FORM, DAILY
     Route: 048
     Dates: start: 20231129, end: 20231212
  7. MAGNESIUM OXIDE [Concomitant]
     Active Substance: MAGNESIUM OXIDE
     Indication: Constipation
     Dosage: 6 DOSAGE FORM, 3 TIMES DAILY
     Route: 048
     Dates: start: 20231213
  8. HERBALS [Concomitant]
     Active Substance: HERBALS
     Indication: Constipation
     Dosage: 3 G, 3 TIMES DAILY
     Route: 048
     Dates: start: 20231213

REACTIONS (2)
  - Inappropriate antidiuretic hormone secretion [Recovered/Resolved]
  - Treatment noncompliance [Recovered/Resolved]

NARRATIVE: CASE EVENT DATE: 20231227
